FAERS Safety Report 17840152 (Version 1)
Quarter: 2020Q2

REPORT INFORMATION
  Report Type: Report from Study
  Country: None (occurrence: US)
  Receive Date: 20200529
  Receipt Date: 20200529
  Transmission Date: 20200714
  Serious: No
  Sender: FDA-Public Use
  Company Number: US-BIOVITRUM-2019US1752

PATIENT
  Age: 61 Year
  Sex: Male

DRUGS (2)
  1. KINERET [Suspect]
     Active Substance: ANAKINRA
     Indication: OSTEOARTHRITIS
  2. KINERET [Suspect]
     Active Substance: ANAKINRA
     Indication: GOUT
     Route: 058
     Dates: start: 20190616

REACTIONS (2)
  - Off label use [Unknown]
  - Ingrowing nail [Unknown]

NARRATIVE: CASE EVENT DATE: 20190616
